FAERS Safety Report 7518247-4 (Version None)
Quarter: 2011Q2

REPORT INFORMATION
  Report Type: 
  Country: None (occurrence: None)
  Receive Date: 20110601
  Receipt Date: 20110601
  Transmission Date: 20111010
  Serious: Yes (Other)
  Sender: FDA-Public Use
  Company Number: None

PATIENT
  Sex: Female
  Weight: 77.1115 kg

DRUGS (1)
  1. PRADAXA [Suspect]
     Indication: ATRIAL FIBRILLATION
     Dosage: 1 TAB (150) 2X DAILY
     Dates: start: 20110322, end: 20110501

REACTIONS (2)
  - TOOTH FRACTURE [None]
  - GASTROOESOPHAGEAL REFLUX DISEASE [None]
